FAERS Safety Report 8482545-0 (Version None)
Quarter: 2012Q3

REPORT INFORMATION
  Report Type: 
  Country: None (occurrence: None)
  Receive Date: 20120702
  Receipt Date: 20120622
  Transmission Date: 20120928
  Serious: Yes (Other)
  Sender: FDA-Public Use
  Company Number: US-BAYER-2012-047654

PATIENT
  Age: 87 Year
  Sex: Female
  Weight: 82.1 kg

DRUGS (7)
  1. LISINOPRIL [Concomitant]
     Dosage: 5 MG, QD
     Dates: start: 20120418
  2. XARELTO [Interacting]
     Indication: HIP ARTHROPLASTY
     Dosage: 10 MG, UNK
     Route: 048
     Dates: start: 20120419, end: 20120507
  3. COLACE [Concomitant]
     Dosage: 10 MG, QD
     Dates: start: 20120418
  4. ULTRAM [Concomitant]
     Dosage: 30 MG, UNK
     Route: 048
     Dates: start: 20120418
  5. XARELTO [Interacting]
     Indication: THROMBOSIS PROPHYLAXIS
  6. ASPIRIN [Suspect]
  7. PRILOSEC [Concomitant]
     Dosage: 20 MG, QD
     Dates: start: 20120418

REACTIONS (1)
  - EPISTAXIS [None]
